FAERS Safety Report 4741885-9 (Version None)
Quarter: 2005Q3

REPORT INFORMATION
  Report Type: 
  Country: None (occurrence: None)
  Receive Date: 20050801
  Receipt Date: 20050621
  Transmission Date: 20060218
  Serious: No
  Sender: FDA-Public Use
  Company Number: 2005PV000085

PATIENT
  Age: 32 Year
  Sex: Female
  Weight: 122.4712 kg

DRUGS (4)
  1. BYETTA [Suspect]
     Indication: BLOOD INSULIN INCREASED
     Dosage: 5 UG;BID;SC
     Route: 058
     Dates: start: 20050617
  2. BYETTA [Suspect]
     Indication: GLUCOSE TOLERANCE IMPAIRED
     Dosage: 5 UG;BID;SC
     Route: 058
     Dates: start: 20050617
  3. GLUCOPHAGE [Concomitant]
  4. AVANDIA [Concomitant]

REACTIONS (2)
  - INJECTION SITE HAEMORRHAGE [None]
  - NAUSEA [None]
